FAERS Safety Report 16667348 (Version 2)
Quarter: 2019Q4

REPORT INFORMATION
  Report Type: Spontaneous
  Country: US (occurrence: US)
  Receive Date: 20190805
  Receipt Date: 20191111
  Transmission Date: 20200122
  Serious: Yes (Death, Hospitalization, Other)
  Sender: FDA-Public Use
  Company Number: US-LUNDBECK-DKLU3001928

PATIENT
  Age: 7 Month
  Sex: Male

DRUGS (3)
  1. VIGABATRIN (FOR ORAL SOLUTION) [Suspect]
     Active Substance: VIGABATRIN
     Indication: INFANTILE SPASMS
     Route: 065
  2. ACTH [Suspect]
     Active Substance: CORTICOTROPIN
     Route: 065
  3. ACTH [Suspect]
     Active Substance: CORTICOTROPIN
     Indication: INFANTILE SPASMS
     Route: 065

REACTIONS (6)
  - Intramyelinic oedema [Unknown]
  - Chorea [Unknown]
  - Magnetic resonance imaging brain abnormal [Unknown]
  - Autonomic nervous system imbalance [Unknown]
  - Toxicity to various agents [Unknown]
  - Death [Fatal]
